FAERS Safety Report 9870860 (Version 2)
Quarter: 2014Q1

REPORT INFORMATION
  Report Type: Spontaneous
  Country: US (occurrence: US)
  Receive Date: 20140205
  Receipt Date: 20140220
  Transmission Date: 20141002
  Serious: Yes (Life-Threatening, Hospitalization)
  Sender: FDA-Public Use
  Company Number: US-PFIZER INC-2014031339

PATIENT
  Age: 60 Year
  Sex: Female

DRUGS (6)
  1. AMIODARONE HCL [Suspect]
     Dosage: UNK
     Route: 065
  2. SPIRONOLACTONE [Suspect]
     Dosage: UNK
     Route: 065
  3. LEVOTHYROXINE SODIUM [Suspect]
     Dosage: UNK
     Route: 065
  4. LISINOPRIL [Suspect]
     Dosage: UNK
     Route: 065
  5. WARFARIN SODIUM [Suspect]
     Dosage: UNK
     Route: 065
  6. FUROSEMIDE [Suspect]
     Dosage: UNK
     Route: 065

REACTIONS (12)
  - Incorrect dose administered [Recovered/Resolved]
  - Disorientation [Recovered/Resolved]
  - Hyperreflexia [Recovered/Resolved]
  - Tremor [Recovered/Resolved]
  - Dry mouth [Recovered/Resolved]
  - Atrial fibrillation [Recovered/Resolved]
  - Hyperkalaemia [Recovered/Resolved]
  - Gastrointestinal haemorrhage [Recovered/Resolved]
  - International normalised ratio increased [Recovered/Resolved]
  - Hypotension [Recovered/Resolved]
  - Blood urea increased [Recovered/Resolved]
  - Blood creatinine increased [Recovered/Resolved]
